FAERS Safety Report 4452589-4 (Version None)
Quarter: 2004Q3

REPORT INFORMATION
  Report Type: 
  Country: None (occurrence: None)
  Receive Date: 20040913
  Receipt Date: 20040727
  Transmission Date: 20050211
  Serious: No
  Sender: FDA-Public Use
  Company Number: 2004-BP-06249BP(0)

PATIENT
  Age: 79 Year
  Sex: Female

DRUGS (8)
  1. SPIRIVA [Suspect]
     Indication: CHRONIC OBSTRUCTIVE AIRWAYS DISEASE
     Dosage: 18 MCG (18 MCG), IH
     Dates: start: 20040624
  2. THEOPHYLLINE [Concomitant]
  3. MIACALCIN [Concomitant]
  4. ALENDRONATE SODIUM [Concomitant]
  5. ADVAIR (SERETIDE MITE) [Concomitant]
  6. ALBUTEROL [Concomitant]
  7. BENICAR HCT [Concomitant]
  8. VITAMINS (VITAMINS) [Concomitant]

REACTIONS (1)
  - LABORATORY TEST ABNORMAL [None]
